FAERS Safety Report 8320527-X (Version None)
Quarter: 2012Q2

REPORT INFORMATION
  Report Type: 
  Country: None (occurrence: None)
  Receive Date: 20120430
  Receipt Date: 20120424
  Transmission Date: 20120825
  Serious: Yes (Death)
  Sender: FDA-Public Use
  Company Number: US-PFIZER INC-2012102251

PATIENT
  Sex: Male

DRUGS (1)
  1. REVATIO [Suspect]
     Indication: COR PULMONALE CHRONIC

REACTIONS (1)
  - DEATH [None]
